FAERS Safety Report 9738921 (Version 1)
Quarter: 2013Q4

REPORT INFORMATION
  Report Type: Spontaneous
  Country: US (occurrence: US)
  Receive Date: 20131209
  Receipt Date: 20131209
  Transmission Date: 20140711
  Serious: Yes (Other)
  Sender: FDA-Public Use
  Company Number: US-RANBAXY-2013US-76101

PATIENT
  Sex: Female
  Weight: 58.96 kg

DRUGS (10)
  1. PANTOPRAZOLE [Suspect]
     Indication: PRODUCT USED FOR UNKNOWN INDICATION
     Dosage: 20 MG, BID
     Route: 065
  2. PANTOPRAZOLE [Suspect]
     Indication: PRODUCT USED FOR UNKNOWN INDICATION
     Dosage: 40 MG, BID
     Route: 065
  3. PROTONIX [Suspect]
     Indication: DYSPEPSIA
     Dosage: 40 MG, BID
     Route: 065
  4. LEVOTHYROXINE [Suspect]
     Indication: THYROID DISORDER
     Dosage: 0.075 MG, QD
     Route: 065
  5. CALCIUM [Concomitant]
     Indication: PRODUCT USED FOR UNKNOWN INDICATION
     Dosage: 600MG, DAILY
     Route: 065
  6. BENICAR [Concomitant]
     Indication: HYPERTENSION
     Dosage: 20 MG DAILY
     Route: 065
  7. ERGOCALCIFEROL [Concomitant]
     Indication: VITAMIN D
     Dosage: 1.25MG, ONCE A MONTH
     Route: 065
  8. VLTAMIN B12 [Concomitant]
     Indication: PRODUCT USED FOR UNKNOWN INDICATION
     Dosage: 1000MG, DAILY
     Route: 065
  9. ASPIRINE [Concomitant]
     Indication: THROMBOSIS
     Dosage: 325 MG, DAILY
     Route: 065
  10. VITAMIN D [Concomitant]
     Indication: PRODUCT USED FOR UNKNOWN INDICATION
     Dosage: 50,000MG, MONTHLY
     Route: 065

REACTIONS (3)
  - Thyroid cancer [Unknown]
  - Gastrointestinal tract adenoma [Unknown]
  - Cerebrovascular accident [Unknown]
